FAERS Safety Report 14138098 (Version 1)
Quarter: 2017Q4

REPORT INFORMATION
  Report Type: Spontaneous
  Country: US (occurrence: US)
  Receive Date: 20171027
  Receipt Date: 20171027
  Transmission Date: 20180321
  Serious: No
  Sender: FDA-Public Use
  Company Number: US-MIST-TIR-2017-0781

PATIENT
  Age: 74 Year
  Sex: Female

DRUGS (2)
  1. TIROSINT [Suspect]
     Active Substance: LEVOTHYROXINE SODIUM
     Dosage: ONE 75MCG CAPSULE DAILY
     Route: 048
     Dates: start: 201708
  2. TIROSINT [Suspect]
     Active Substance: LEVOTHYROXINE SODIUM
     Indication: HYPOTHYROIDISM
     Dosage: ONE 75MCG CAPSULE DAILY (SAMPLES)
     Route: 048
     Dates: start: 201707

REACTIONS (3)
  - Product storage error [Unknown]
  - Constipation [Unknown]
  - Drug ineffective [None]

NARRATIVE: CASE EVENT DATE: 201708
